FAERS Safety Report 18988026 (Version 2)
Quarter: 2021Q2

REPORT INFORMATION
  Report Type: Spontaneous
  Country: DE (occurrence: DE)
  Receive Date: 20210309
  Receipt Date: 20210406
  Transmission Date: 20210717
  Serious: Yes (Hospitalization)
  Sender: FDA-Public Use
  Company Number: NVSC2021DE050845

PATIENT
  Age: 41 Year
  Sex: Female
  Weight: 62 kg

DRUGS (5)
  1. ELONTRIL [Concomitant]
     Active Substance: BUPROPION HYDROCHLORIDE
     Indication: DEPRESSION
     Dosage: 150MG
     Route: 048
     Dates: start: 201611
  2. GILENYA [Suspect]
     Active Substance: FINGOLIMOD HYDROCHLORIDE
     Indication: MULTIPLE SCLEROSIS
     Dosage: 0.5 MG, QD
     Route: 048
     Dates: start: 20190805, end: 202006
  3. BACLOFEN. [Concomitant]
     Active Substance: BACLOFEN
     Indication: MUSCLE SPASTICITY
     Dosage: 20 MG, QD
     Route: 048
     Dates: start: 201801
  4. FAMPYRA [Concomitant]
     Active Substance: DALFAMPRIDINE
     Indication: GAIT DISTURBANCE
     Dosage: 20 MG, QD
     Route: 048
     Dates: start: 201611
  5. PREGABALIN. [Concomitant]
     Active Substance: PREGABALIN
     Indication: NEURALGIA
     Dosage: 225 MG, QD
     Route: 048
     Dates: start: 201801

REACTIONS (1)
  - Breast cancer [Recovered/Resolved]

NARRATIVE: CASE EVENT DATE: 202006
